FAERS Safety Report 7960906-3 (Version None)
Quarter: 2011Q4

REPORT INFORMATION
  Report Type: 
  Country: None (occurrence: None)
  Receive Date: 20111201
  Receipt Date: 20111116
  Transmission Date: 20120403
  Serious: Yes (Other)
  Sender: FDA-Public Use
  Company Number: 2011MA002774

PATIENT
  Sex: Female
  Weight: 54.4316 kg

DRUGS (23)
  1. CRESTOR [Concomitant]
  2. LIPITOR [Concomitant]
  3. ZYRTEC [Concomitant]
  4. THYROID TAB [Concomitant]
  5. NORVASC [Concomitant]
  6. CLARINEX [Concomitant]
  7. HYDROCHLOROTHIAZIDE [Concomitant]
  8. VESICARE [Concomitant]
  9. BENICAR [Concomitant]
  10. LEVOTHYROXINE SODIUM [Concomitant]
  11. OXYTROL [Concomitant]
  12. NEXIUM [Concomitant]
  13. REQUIP [Concomitant]
  14. TOPROL-XL [Concomitant]
  15. SINGULAIR [Concomitant]
  16. AMITIZA [Concomitant]
  17. METOPROLOL TARTRATE [Concomitant]
  18. METOCLOPRAMIDE [Suspect]
     Indication: GASTROOESOPHAGEAL REFLUX DISEASE
     Dosage: 10 MG;BID;
     Dates: start: 20060621, end: 20090307
  19. BUMETANIDE [Concomitant]
  20. FOLIC ACID [Concomitant]
  21. OXYBUTYNIN [Concomitant]
  22. ZEGERID [Concomitant]
  23. ZELNORM [Concomitant]

REACTIONS (33)
  - ECONOMIC PROBLEM [None]
  - EMOTIONAL DISORDER [None]
  - IRRITABILITY [None]
  - HYPOAESTHESIA [None]
  - FATIGUE [None]
  - INSOMNIA [None]
  - EXERCISE TOLERANCE DECREASED [None]
  - NAUSEA [None]
  - PARAESTHESIA [None]
  - HALLUCINATION, VISUAL [None]
  - EAR DISCOMFORT [None]
  - BLOOD UREA INCREASED [None]
  - CHILLS [None]
  - BLOOD PRESSURE DECREASED [None]
  - PYREXIA [None]
  - DYSPNOEA [None]
  - CONSTIPATION [None]
  - GRIMACING [None]
  - RESTLESS LEGS SYNDROME [None]
  - DYSKINESIA [None]
  - TACHYCARDIA [None]
  - POLLAKIURIA [None]
  - EAR CONGESTION [None]
  - TARDIVE DYSKINESIA [None]
  - DIZZINESS [None]
  - DRUG INEFFECTIVE [None]
  - WEIGHT INCREASED [None]
  - FAMILY STRESS [None]
  - EAR INFECTION [None]
  - RAYNAUD'S PHENOMENON [None]
  - MEMORY IMPAIRMENT [None]
  - OEDEMA PERIPHERAL [None]
  - BLOOD CREATININE [None]
